FAERS Safety Report 23821979 (Version 1)
Quarter: 2024Q2

REPORT INFORMATION
  Report Type: Spontaneous
  Country: US (occurrence: US)
  Receive Date: 20240506
  Receipt Date: 20240506
  Transmission Date: 20240716
  Serious: No
  Sender: FDA-Public Use
  Company Number: US-ALNYLAM PHARMACEUTICALS, INC.-ALN-2024-002330

PATIENT

DRUGS (4)
  1. AMVUTTRA [Suspect]
     Active Substance: VUTRISIRAN
     Indication: Product used for unknown indication
     Dosage: UNK
     Route: 065
     Dates: start: 202305, end: 202305
  2. AMVUTTRA [Suspect]
     Active Substance: VUTRISIRAN
     Dosage: UNK, Q3M
     Route: 065
     Dates: start: 20240215, end: 20240215
  3. VITAMIN A [Concomitant]
     Active Substance: VITAMIN A
     Indication: Supplementation therapy
     Dosage: 10000 IU INTERNATIONAL UNIT(S), QD
     Route: 065
     Dates: start: 20240314
  4. OCUVITE [Concomitant]
     Active Substance: VITAMINS
     Indication: Product used for unknown indication
     Dosage: 1 DOSAGE FORM, WEEKLY
     Route: 065
     Dates: start: 2023

REACTIONS (2)
  - Dry eye [Unknown]
  - Vitamin A decreased [Unknown]

NARRATIVE: CASE EVENT DATE: 20240101
